FAERS Safety Report 6072643-3 (Version None)
Quarter: 2009Q1

REPORT INFORMATION
  Report Type: 
  Country: None (occurrence: None)
  Receive Date: 20090210
  Receipt Date: 20090127
  Transmission Date: 20090719
  Serious: Yes (Other)
  Sender: FDA-Public Use
  Company Number: US-PFIZER INC-2009162082

PATIENT
  Sex: Male
  Weight: 59.42 kg

DRUGS (10)
  1. CHANTIX [Suspect]
     Indication: SMOKING CESSATION THERAPY
     Dates: start: 20070101
  2. PROZAC [Concomitant]
  3. KAOPECTATE [Concomitant]
  4. ASPIRIN [Concomitant]
     Indication: ARRHYTHMIA
     Dosage: 81 MG, UNK
  5. SIMVASTATIN [Concomitant]
  6. CARVEDILOL [Concomitant]
  7. TRAZODONE HYDROCHLORIDE [Concomitant]
  8. NITROGLYCERIN [Concomitant]
  9. OMEPRAZOLE [Concomitant]
  10. COUMADIN [Concomitant]

REACTIONS (3)
  - DIZZINESS [None]
  - GAIT DISTURBANCE [None]
  - TREMOR [None]
